FAERS Safety Report 6558024-4 (Version None)
Quarter: 2010Q1

REPORT INFORMATION
  Report Type: 
  Country: None (occurrence: None)
  Receive Date: 20100127
  Receipt Date: 20100127
  Transmission Date: 20100710
  Serious: No
  Sender: FDA-Public Use
  Company Number: None

PATIENT
  Age: 22 Year
  Sex: Female
  Weight: 61.6892 kg

DRUGS (15)
  1. MERREM [Suspect]
     Indication: CHRONIC SINUSITIS
     Dosage: 2 GRAMS EVERY 8 HOURS INTRAVENOUS BOLUS
     Route: 040
     Dates: start: 20091229, end: 20100113
  2. ALBUTEROL SULFATE NEBULIZING SOLUTION [Concomitant]
  3. ALBUTEROL SULFATE AUTOHALER [Concomitant]
  4. AZITHROMYCIN [Concomitant]
  5. PULMOZYME [Concomitant]
  6. ALLEGRA [Concomitant]
  7. HEPARIN FLUSH (PORCINE) IN NS IV [Concomitant]
  8. LIDOCAINE-PRILOCAINE (EMLA) [Concomitant]
  9. LIPASE-PROTEASE-AMYLASE (PANCREASE MT) [Concomitant]
  10. MULTIVITAMINS-FA-ZINC [Concomitant]
  11. OMEPRAZOLE [Concomitant]
  12. SODIUM CHLORIDE [Concomitant]
  13. TOBRAMYCIN INHALATION SOLUTION [Concomitant]
  14. TOBRAMYCIN SULFATE [Concomitant]
  15. WATER FOR INJECTION, STERILE INJECTION (STERILE WATER FOR INJECTION) W [Concomitant]

REACTIONS (1)
  - EOSINOPHIL COUNT INCREASED [None]
